FAERS Safety Report 20176681 (Version 3)
Quarter: 2024Q4

REPORT INFORMATION
  Report Type: Spontaneous
  Country: GB (occurrence: GB)
  Receive Date: 20211213
  Receipt Date: 20241018
  Transmission Date: 20250115
  Serious: Yes (Other)
  Sender: INSUD PHARMA
  Company Number: None

PATIENT
  Age: 75 Year
  Sex: Female

DRUGS (19)
  1. LANSOPRAZOLE [Suspect]
     Active Substance: LANSOPRAZOLE
     Indication: Product used for unknown indication
     Dosage: DOSAGE FORM: UNSPECIFIED;
     Route: 065
  2. BISOPROLOL [Suspect]
     Active Substance: BISOPROLOL\BISOPROLOL FUMARATE
     Indication: Product used for unknown indication
     Dosage: DOSAGE FORM: UNKNOWN;
     Route: 065
  3. CEREZYME [Suspect]
     Active Substance: IMIGLUCERASE
     Indication: Product used for unknown indication
     Dosage: DOSE:800 UNIT(S);
     Route: 041
     Dates: end: 20170329
  4. CEREZYME [Suspect]
     Active Substance: IMIGLUCERASE
     Dosage: DOSAGE FORM: UNSPECIFIED, DATE OF LAST  ADMINISTRATION WAS: 15-MAR-2017 AND 29-MAR-2017.
     Route: 041
     Dates: end: 20170315
  5. CEREZYME [Suspect]
     Active Substance: IMIGLUCERASE
     Dosage: IU INTERNATIONAL UNIT(S DATE OF LAST  ADMINISTRATION WAS: 15-MAR-2017 AND 29-MAR-2017.
     Dates: end: 20170315
  6. CITALOPRAM [Suspect]
     Active Substance: CITALOPRAM
     Indication: Product used for unknown indication
     Dosage: DOSAGE FORM: UNSPECIFIED;
     Route: 065
  7. BENSERAZIDE HYDROCHLORIDE\LEVODOPA [Suspect]
     Active Substance: BENSERAZIDE HYDROCHLORIDE\LEVODOPA
     Indication: Product used for unknown indication
     Dosage: DOSAGE FORM: UNSPECIFIED;
     Route: 065
  8. BENSERAZIDE HYDROCHLORIDE\LEVODOPA [Suspect]
     Active Substance: BENSERAZIDE HYDROCHLORIDE\LEVODOPA
     Dosage: DOSAGE FORM: UNSPECIFIED
  9. CYCLIZINE [Suspect]
     Active Substance: CYCLIZINE
     Indication: Product used for unknown indication
     Dosage: DOSAGE FORM: UNSPECIFIED;
     Route: 065
  10. CYCLIZINE [Suspect]
     Active Substance: CYCLIZINE
     Dosage: DOSAGE FORM: UNSPECIFIED ()
  11. DOMPERIDONE [Suspect]
     Active Substance: DOMPERIDONE
     Indication: Product used for unknown indication
     Dosage: UNK
     Route: 065
     Dates: end: 20170329
  12. DOMPERIDONE [Suspect]
     Active Substance: DOMPERIDONE
     Dosage: UNK
     Route: 065
     Dates: end: 20170329
  13. LACTULOSE [Suspect]
     Active Substance: LACTULOSE
     Indication: Product used for unknown indication
     Dosage: DOSAGE FORM: UNSPECIFIED;
     Route: 065
  14. QUETIAPINE FUMARATE [Suspect]
     Active Substance: QUETIAPINE FUMARATE
     Indication: Product used for unknown indication
     Dosage: DOSAGE FORM: UNSPECIFIED;
     Route: 065
  15. RIVASTIGMINE [Suspect]
     Active Substance: RIVASTIGMINE
     Indication: Product used for unknown indication
     Dosage: DOSAGE FORM: UNSPECIFIED;
     Route: 065
  16. ROPINIROLE [Suspect]
     Active Substance: ROPINIROLE
     Indication: Product used for unknown indication
     Dosage: DOSAGE FORM: UNSPECIFIED;
     Route: 065
  17. ROPINIROLE [Suspect]
     Active Substance: ROPINIROLE
     Dosage: DOSAGE FORM: UNSPECIFIED
  18. SENNA LEAF [Suspect]
     Active Substance: SENNA LEAF
     Indication: Product used for unknown indication
     Dosage: DOSAGE FORM: UNKNOWN;
     Route: 065
  19. SENNA LEAF [Suspect]
     Active Substance: SENNA LEAF
     Dosage: DOSAGE FORM: UNKNOWN

REACTIONS (3)
  - Parkinson^s disease [Unknown]
  - Dizziness [Unknown]
  - Dizziness [Unknown]
